FAERS Safety Report 9760919 (Version 3)
Quarter: 2013Q4

REPORT INFORMATION
  Report Type: Spontaneous
  Country: US (occurrence: US)
  Receive Date: 20131216
  Receipt Date: 20131223
  Transmission Date: 20140711
  Serious: No
  Sender: FDA-Public Use
  Company Number: US-GILEAD-2013-0090052

PATIENT
  Sex: Male

DRUGS (6)
  1. LETAIRIS [Suspect]
     Indication: PULMONARY ARTERIAL HYPERTENSION
     Dosage: 10 MG, QD
     Route: 065
     Dates: start: 20131024
  2. LETAIRIS [Suspect]
     Indication: HIV INFECTION
  3. LETAIRIS [Suspect]
     Indication: ATRIAL SEPTAL DEFECT
  4. TYVASO [Concomitant]
  5. COUMADIN                           /00014802/ [Concomitant]
  6. REVATIO [Concomitant]

REACTIONS (2)
  - Nausea [Recovered/Resolved]
  - Headache [Unknown]
